FAERS Safety Report 19750413 (Version 1)
Quarter: 2021Q3

REPORT INFORMATION
  Report Type: Spontaneous
  Country: US (occurrence: US)
  Receive Date: 20210826
  Receipt Date: 20210826
  Transmission Date: 20211014
  Serious: No
  Sender: FDA-Public Use
  Company Number: None

PATIENT
  Age: 65 Year
  Sex: Female
  Weight: 74.25 kg

DRUGS (8)
  1. LOSARTAN POTASSIUM 50 MG TAB [Suspect]
     Active Substance: LOSARTAN POTASSIUM
     Indication: HYPERTENSION
     Dosage: ?          QUANTITY:1 TABLET(S);?
     Route: 048
     Dates: start: 20210721, end: 20210824
  2. THORNE MULTI?VITAMIN [Concomitant]
  3. PROMETHAZINE [Concomitant]
     Active Substance: PROMETHAZINE HYDROCHLORIDE
  4. XANAX [Concomitant]
     Active Substance: ALPRAZOLAM
  5. ZOLPIDEM TARTRATE. [Concomitant]
     Active Substance: ZOLPIDEM TARTRATE
  6. IBGUARD SUPPLEMT FOR IBS [Concomitant]
  7. HALCION [Concomitant]
     Active Substance: TRIAZOLAM
  8. SIMETHICONE FOR GAS BUILDUP [Concomitant]

REACTIONS (11)
  - Confusional state [None]
  - Nausea [None]
  - Blood pressure increased [None]
  - Oropharyngeal pain [None]
  - Hostility [None]
  - Vomiting [None]
  - Anger [None]
  - Somnolence [None]
  - Depression [None]
  - Diarrhoea [None]
  - Dizziness [None]

NARRATIVE: CASE EVENT DATE: 20210823
